FAERS Safety Report 13486506 (Version 2)
Quarter: 2017Q2

REPORT INFORMATION
  Report Type: Report from Study
  Country: DE (occurrence: DE)
  Receive Date: 20170426
  Receipt Date: 20170524
  Transmission Date: 20170830
  Serious: Yes (Hospitalization)
  Sender: FDA-Public Use
  Company Number: DE-TEVA-760588GER

PATIENT
  Sex: Female

DRUGS (6)
  1. RITUXIMAB [Suspect]
     Active Substance: RITUXIMAB
     Indication: B-CELL LYMPHOMA
     Dosage: MOST RECENT CYCLE NUMBER 4, DATE LAST RITUX. GIVEN PRIOR TO SAE 15-MAR-2017 (700 MG, 1X IN 2 WK)
     Route: 042
     Dates: start: 20170118, end: 20170315
  2. VINCRISTINE [Suspect]
     Active Substance: VINCRISTINE
     Indication: B-CELL LYMPHOMA
     Dosage: ON 16-MAR-2017, SHE REC. MOST RECENT DOSE (1.72 MG, 1 IN 2 WK)
     Route: 042
     Dates: start: 20170124, end: 20170316
  3. PREDNISOLONE. [Suspect]
     Active Substance: PREDNISOLONE
     Indication: B-CELL LYMPHOMA
     Dosage: FIVE DAYS EVERY 2 WEEKS FOR 52 DAYS. ON 16-MAR-2017, REC. MOST RECENT DOSE (500 MG, 1 IN 2 WK)
     Route: 065
     Dates: start: 20170124, end: 20170316
  4. CYCLOPHOSPHAMIDE. [Suspect]
     Active Substance: CYCLOPHOSPHAMIDE
     Indication: B-CELL LYMPHOMA
     Dosage: ON 16-MAR-2017, SHE REC. MOST RECENT DOSE (1255 MG, 1 IN 2 WK)
     Route: 042
     Dates: start: 20170124, end: 20170316
  5. PEGFILGRASTIM [Suspect]
     Active Substance: PEGFILGRASTIM
     Indication: B-CELL LYMPHOMA
     Route: 058
     Dates: start: 20170124, end: 20170316
  6. DOXORUBICIN [Suspect]
     Active Substance: DOXORUBICIN
     Indication: B-CELL LYMPHOMA
     Dosage: ON 16-MAR-2017, SHE REC. MOST RECENT DOSE (84 MG, 1 IN 2 WK)
     Route: 042
     Dates: start: 20170124, end: 20170316

REACTIONS (1)
  - Urinary tract infection [Recovered/Resolved]

NARRATIVE: CASE EVENT DATE: 20170405
